FAERS Safety Report 9505962 (Version 1)
Quarter: 2013Q1

REPORT INFORMATION
  Report Type: Spontaneous
  Country: US (occurrence: None)
  Receive Date: 20130305
  Receipt Date: 20130305
  Transmission Date: 20140127
  Serious: No
  Sender: FDA-Public Use
  Company Number: 1000041369

PATIENT
  Age: 70 Year
  Sex: Female
  Weight: 51.7 kg

DRUGS (7)
  1. DALIRESP (ROFLUMILAST) (500 MICROGRAM, TABLETS) [Suspect]
     Indication: CHRONIC OBSTRUCTIVE PULMONARY DISEASE
     Dosage: 500 MCG (500 MCG, 1 IN 1 D), ORAL
     Route: 048
     Dates: start: 20121229
  2. SULFASALAZINE (SULFASALAZINE) (SULFASALAZINE) [Concomitant]
  3. HYDROXYCHLOROQUINE (HYDROXYCHLOROQUINE) (HYDROXYCHLOROQUINE) [Concomitant]
  4. SYMBICORT (BUDESONIDE W/FORMOTEROL FUMARATE) (BUDESONIDE W/FORMOTEROL FUMARATE) [Concomitant]
  5. SPIRIVA (TIOTROPIUM BROMIDE) (TIOTROPIUM BROMIDE) [Concomitant]
  6. LISINOPRIL (LISINOPRIL) (LISINOPRIL) [Concomitant]
  7. OXYGEN (OXYGEN) (OXYGEN) [Concomitant]

REACTIONS (2)
  - Nausea [None]
  - Weight decreased [None]
